FAERS Safety Report 14951001 (Version 3)
Quarter: 2018Q3

REPORT INFORMATION
  Report Type: Report from Study
  Country: US (occurrence: US)
  Receive Date: 20180530
  Receipt Date: 20180801
  Transmission Date: 20181010
  Serious: Yes (Death, Hospitalization, Other)
  Sender: FDA-Public Use
  Company Number: US-CELGENEUS-USA-20180508391

PATIENT
  Age: 48 Year
  Sex: Male
  Weight: 120.9 kg

DRUGS (18)
  1. BACTRIM [Concomitant]
     Active Substance: SULFAMETHOXAZOLE\TRIMETHOPRIM
     Indication: PRODUCT USED FOR UNKNOWN INDICATION
     Route: 065
  2. FLUDARABINE [Concomitant]
     Active Substance: FLUDARABINE PHOSPHATE
     Indication: PRODUCT USED FOR UNKNOWN INDICATION
     Route: 065
     Dates: start: 20180411, end: 20180414
  3. PROTONIX [Concomitant]
     Active Substance: PANTOPRAZOLE SODIUM
     Indication: PRODUCT USED FOR UNKNOWN INDICATION
     Route: 041
  4. MEROPENEM. [Concomitant]
     Active Substance: MEROPENEM
     Indication: PRODUCT USED FOR UNKNOWN INDICATION
     Route: 065
  5. ERTAPENEM. [Concomitant]
     Active Substance: ERTAPENEM SODIUM
     Indication: PRODUCT USED FOR UNKNOWN INDICATION
     Route: 065
  6. ANTITHYMOCYTE GLOBULIN [Concomitant]
     Active Substance: THYMOCYTE IMMUNE GLOBULIN NOS
     Indication: PRODUCT USED FOR UNKNOWN INDICATION
     Route: 065
     Dates: start: 20180414, end: 20180416
  7. BUSULFAN. [Concomitant]
     Active Substance: BUSULFAN
     Indication: PRODUCT USED FOR UNKNOWN INDICATION
     Route: 065
     Dates: start: 20180411, end: 20180414
  8. TACROLIMUS. [Concomitant]
     Active Substance: TACROLIMUS
     Indication: PRODUCT USED FOR UNKNOWN INDICATION
     Route: 065
  9. URSODIOL. [Concomitant]
     Active Substance: URSODIOL
     Indication: PROPHYLAXIS
     Route: 065
  10. ARANESP [Concomitant]
     Active Substance: DARBEPOETIN ALFA
     Indication: PRODUCT USED FOR UNKNOWN INDICATION
     Route: 065
     Dates: start: 20180703
  11. ROMIDEPSIN. [Suspect]
     Active Substance: ROMIDEPSIN
     Indication: ALLOGENIC BONE MARROW TRANSPLANTATION THERAPY
  12. SIROLIMUS. [Concomitant]
     Active Substance: SIROLIMUS
     Indication: PROPHYLAXIS AGAINST GRAFT VERSUS HOST DISEASE
     Route: 065
  13. FOSCARNET [Concomitant]
     Active Substance: FOSCARNET
     Indication: PRODUCT USED FOR UNKNOWN INDICATION
     Route: 065
  14. CELLCEPT [Concomitant]
     Active Substance: MYCOPHENOLATE MOFETIL\MYCOPHENOLATE MOFETIL HYDROCHLORIDE
     Indication: PRODUCT USED FOR UNKNOWN INDICATION
     Route: 065
  15. ROMIDEPSIN. [Suspect]
     Active Substance: ROMIDEPSIN
     Indication: ANGIOIMMUNOBLASTIC T-CELL LYMPHOMA
     Dosage: 3.3 MILLIGRAM
     Route: 041
     Dates: start: 20180411, end: 20180414
  16. CRESEMBA [Concomitant]
     Active Substance: ISAVUCONAZONIUM SULFATE
     Indication: PRODUCT USED FOR UNKNOWN INDICATION
     Route: 065
  17. ACYCLOVIR. [Concomitant]
     Active Substance: ACYCLOVIR
     Indication: PROPHYLAXIS
     Route: 065
  18. METHYLPREDNISOLONE. [Concomitant]
     Active Substance: METHYLPREDNISOLONE
     Indication: GRAFT VERSUS HOST DISEASE IN GASTROINTESTINAL TRACT
     Dosage: 1 MILLIGRAM/KILOGRAM
     Route: 065

REACTIONS (9)
  - Liver function test increased [Unknown]
  - Atrial fibrillation [Unknown]
  - Gastrointestinal haemorrhage [Not Recovered/Not Resolved]
  - Encephalopathy [Unknown]
  - Acute kidney injury [Not Recovered/Not Resolved]
  - Pneumonia klebsiella [Unknown]
  - Septic shock [Unknown]
  - Death [Fatal]
  - Bladder cancer [Unknown]

NARRATIVE: CASE EVENT DATE: 20180521
